FAERS Safety Report 11577017 (Version 1)
Quarter: 2015Q3

REPORT INFORMATION
  Report Type: Spontaneous
  Country: US (occurrence: US)
  Receive Date: 20150916
  Receipt Date: 20150916
  Transmission Date: 20151125
  Serious: No
  Sender: FDA-Public Use
  Company Number: US-ELI_LILLY_AND_COMPANY-US201306000324

PATIENT
  Sex: Male

DRUGS (5)
  1. NIACIN. [Concomitant]
     Active Substance: NIACIN
  2. HUMALOG [Suspect]
     Active Substance: INSULIN LISPRO
     Indication: TYPE 2 DIABETES MELLITUS
     Dosage: UNK, UNKNOWN
  3. LANTUS [Concomitant]
     Active Substance: INSULIN GLARGINE
  4. CALCIUM [Concomitant]
     Active Substance: CALCIUM
  5. BYETTA [Concomitant]
     Active Substance: EXENATIDE

REACTIONS (1)
  - Muscle spasms [Recovered/Resolved]
